FAERS Safety Report 11497919 (Version 2)
Quarter: 2015Q3

REPORT INFORMATION
  Report Type: Spontaneous
  Country: AU (occurrence: AU)
  Receive Date: 20150911
  Receipt Date: 20150911
  Transmission Date: 20151125
  Serious: Yes (Other)
  Sender: FDA-Public Use
  Company Number: PHHY2015AU105950

PATIENT
  Age: 68 Year
  Sex: Male

DRUGS (3)
  1. OCTREOTIDE. [Suspect]
     Active Substance: OCTREOTIDE
     Indication: CARCINOID SYNDROME
     Dosage: 100 UG, TID
     Route: 058
  2. OCTREOTIDE. [Suspect]
     Active Substance: OCTREOTIDE
     Dosage: 250 UG, FOUR TIMES A DAY
     Route: 058
  3. OCTREOTIDE. [Suspect]
     Active Substance: OCTREOTIDE
     Dosage: 450 UG/HR, UNK
     Route: 058

REACTIONS (8)
  - Drug resistance [Unknown]
  - Cardiac arrest [Unknown]
  - Acute coronary syndrome [Unknown]
  - Blood pressure systolic increased [Unknown]
  - Carcinoid crisis [Unknown]
  - Flushing [Unknown]
  - Blood pressure systolic abnormal [Unknown]
  - Diarrhoea [Unknown]
